FAERS Safety Report 7811631-0 (Version None)
Quarter: 2011Q4

REPORT INFORMATION
  Report Type: 
  Country: None (occurrence: None)
  Receive Date: 20111013
  Receipt Date: 20111007
  Transmission Date: 20120403
  Serious: Yes (Other)
  Sender: FDA-Public Use
  Company Number: BE-PFIZER INC-2011229200

PATIENT
  Age: 54 Year
  Sex: Female
  Weight: 47 kg

DRUGS (11)
  1. XANAX [Concomitant]
     Dosage: 0.5 MG, 1X/DAY
     Route: 048
     Dates: start: 20110821, end: 20110901
  2. PARACETAMOL [Concomitant]
     Dosage: 1 G, UNK
     Route: 042
     Dates: start: 20110816, end: 20110823
  3. PIPERACILLIN AND TAZOBACTAM [Concomitant]
     Dosage: 4 G, 4X/DAY
     Route: 042
     Dates: start: 20110822, end: 20110830
  4. ENOXAPARIN SODIUM [Concomitant]
     Dosage: 40 MG, 1X/DAY
     Route: 058
     Dates: start: 20110816, end: 20110905
  5. ECALTA [Suspect]
     Indication: POST PROCEDURAL INFECTION
     Dosage: 100 MG, 1X/DAY
     Route: 042
     Dates: start: 20110826, end: 20110901
  6. VANCOMYCIN HCL [Concomitant]
     Dosage: UNK
     Route: 042
     Dates: start: 20110819, end: 20110901
  7. ECALTA [Suspect]
     Indication: CANDIDIASIS
     Dosage: 200 MG, 1X/DAY
     Route: 042
     Dates: start: 20110825, end: 20110825
  8. DIFLUCAN [Concomitant]
     Dosage: 400 MG, 1X/DAY
     Route: 042
     Dates: start: 20110823, end: 20110825
  9. LITICAN [Concomitant]
     Dosage: UNK
     Route: 042
     Dates: start: 20110819, end: 20110826
  10. PANTOPRAZOLE SODIUM [Concomitant]
     Dosage: 40 MG, 1X/DAY
     Route: 042
     Dates: start: 20110815, end: 20110830
  11. DUOVENT [Concomitant]
     Dosage: UNK
     Route: 055
     Dates: start: 20110820, end: 20110905

REACTIONS (1)
  - THROMBOCYTOSIS [None]
